FAERS Safety Report 5085366-4 (Version None)
Quarter: 2006Q3

REPORT INFORMATION
  Report Type: 
  Country: None (occurrence: None)
  Receive Date: 20060817
  Receipt Date: 20060803
  Transmission Date: 20061208
  Serious: Yes (Other)
  Sender: FDA-Public Use
  Company Number: 2006090153

PATIENT
  Age: 40 Year
  Sex: Female

DRUGS (2)
  1. BEXTRA [Suspect]
     Indication: MYALGIA
     Dosage: UNK (20 MG, UNKNOWN), UNKNOWN
     Dates: start: 20030701
  2. BEXTRA [Suspect]
     Indication: PAIN
     Dosage: UNK (20 MG, UNKNOWN), UNKNOWN
     Dates: start: 20030701

REACTIONS (7)
  - ARRHYTHMIA [None]
  - CARDIAC DISORDER [None]
  - CHEST PAIN [None]
  - HEART RATE ABNORMAL [None]
  - HYPERTENSION [None]
  - HYPOAESTHESIA [None]
  - PALPITATIONS [None]
